FAERS Safety Report 7815082-4 (Version None)
Quarter: 2011Q4

REPORT INFORMATION
  Report Type: 
  Country: None (occurrence: None)
  Receive Date: 20111014
  Receipt Date: 20111014
  Transmission Date: 20120403
  Serious: Yes (Hospitalization)
  Sender: FDA-Public Use
  Company Number: None

PATIENT
  Age: 50 Year
  Sex: Female
  Weight: 76.203 kg

DRUGS (2)
  1. NUVARING [Suspect]
     Indication: HORMONE THERAPY
     Dosage: 1 RING
  2. NUVARING [Suspect]
     Indication: MENOPAUSE
     Dosage: 1 RING

REACTIONS (1)
  - PULMONARY THROMBOSIS [None]
